FAERS Safety Report 9371283 (Version 2)
Quarter: 2013Q3

REPORT INFORMATION
  Report Type: Report from Study
  Country: GB (occurrence: GB)
  Receive Date: 20130627
  Receipt Date: 20130905
  Transmission Date: 20140515
  Serious: Yes (Other)
  Sender: FDA-Public Use
  Company Number: GB-ROCHE-1242130

PATIENT
  Age: 73 Year
  Sex: Female

DRUGS (2)
  1. RANIBIZUMAB [Suspect]
     Indication: PRODUCT USED FOR UNKNOWN INDICATION
     Route: 050
     Dates: start: 20070907
  2. RANIBIZUMAB [Suspect]
     Route: 050
     Dates: start: 20121027

REACTIONS (6)
  - Bradycardia [Recovered/Resolved]
  - Dyspnoea [Recovered/Resolved]
  - Hypertension [Unknown]
  - Hypertension [Unknown]
  - Tachycardia [Unknown]
  - Ventricular extrasystoles [Unknown]
